FAERS Safety Report 23393422 (Version 1)
Quarter: 2024Q1

REPORT INFORMATION
  Report Type: Report from Study
  Country: US (occurrence: US)
  Receive Date: 20240111
  Receipt Date: 20240111
  Transmission Date: 20240410
  Serious: Yes (Hospitalization)
  Sender: FDA-Public Use
  Company Number: US-BIOGEN-2024BI01244042

PATIENT
  Age: 0 Year
  Sex: Male

DRUGS (1)
  1. SPINRAZA [Suspect]
     Active Substance: NUSINERSEN
     Indication: Spinal muscular atrophy
     Route: 050

REACTIONS (6)
  - Oxygen saturation decreased [Unknown]
  - Irritability [Unknown]
  - Lower respiratory tract congestion [Unknown]
  - Cough [Unknown]
  - Hypersomnia [Unknown]
  - Vomiting [Unknown]

NARRATIVE: CASE EVENT DATE: 20240104
